FAERS Safety Report 5927759-6 (Version None)
Quarter: 2008Q4

REPORT INFORMATION
  Report Type: 
  Country: None (occurrence: None)
  Receive Date: 20081023
  Receipt Date: 20071105
  Transmission Date: 20090506
  Serious: No
  Sender: FDA-Public Use
  Company Number: US-ASTRAZENECA-2007UW25741

PATIENT
  Age: 81 Year
  Sex: Female

DRUGS (2)
  1. MERREM [Suspect]
     Route: 042
  2. VANCOMYCIN [Concomitant]

REACTIONS (2)
  - RASH [None]
  - SKIN EXFOLIATION [None]
